FAERS Safety Report 16419280 (Version 1)
Quarter: 2019Q2

REPORT INFORMATION
  Report Type: Spontaneous
  Country: US (occurrence: US)
  Receive Date: 20190503
  Receipt Date: 20190503
  Transmission Date: 20190711
  Serious: Yes (Hospitalization)
  Sender: FDA-Public Use
  Company Number: None

PATIENT
  Sex: Male
  Weight: 99 kg

DRUGS (3)
  1. DEXAMETHASONE. [Suspect]
     Active Substance: DEXAMETHASONE
     Dates: end: 20190409
  2. LENALIDOMIDE (CC-5013) [Suspect]
     Active Substance: LENALIDOMIDE
     Dates: end: 20190408
  3. VELCADE [Suspect]
     Active Substance: BORTEZOMIB
     Dates: end: 20190409

REACTIONS (11)
  - Culture wound positive [None]
  - Gram stain positive [None]
  - Duodenal ulcer [None]
  - Alpha haemolytic streptococcal infection [None]
  - Bacteroides test positive [None]
  - Diverticulitis [None]
  - Large intestine perforation [None]
  - Peritoneal abscess [None]
  - Abdominal abscess [None]
  - Purulent discharge [None]
  - Diverticular perforation [None]

NARRATIVE: CASE EVENT DATE: 20190410
